FAERS Safety Report 8480486-6 (Version None)
Quarter: 2012Q3

REPORT INFORMATION
  Report Type: 
  Country: None (occurrence: None)
  Receive Date: 20120702
  Receipt Date: 20120619
  Transmission Date: 20120928
  Serious: No
  Sender: FDA-Public Use
  Company Number: US-BIOGENIDEC-2011BI048228

PATIENT
  Sex: Male
  Weight: 50 kg

DRUGS (3)
  1. TYSABRI [Suspect]
     Route: 042
     Dates: start: 20110101
  2. TYSABRI [Suspect]
     Indication: MULTIPLE SCLEROSIS
     Route: 042
     Dates: start: 20091106
  3. TYSABRI [Suspect]
     Route: 042
     Dates: start: 20120123, end: 20120514

REACTIONS (14)
  - NEUROGENIC BLADDER [None]
  - TRIGEMINAL NEURALGIA [None]
  - PARAPARESIS [None]
  - MUSCULAR WEAKNESS [None]
  - URINARY RETENTION [None]
  - FACIAL PAIN [None]
  - CHEST X-RAY ABNORMAL [None]
  - PSEUDOBULBAR PALSY [None]
  - FATIGUE [None]
  - PAIN [None]
  - STRESS [None]
  - DEPRESSION [None]
  - ASTHENIA [None]
  - DECREASED APPETITE [None]
